FAERS Safety Report 4430004-4 (Version None)
Quarter: 2004Q3

REPORT INFORMATION
  Report Type: 
  Country: None (occurrence: None)
  Receive Date: 20040820
  Receipt Date: 20040812
  Transmission Date: 20050211
  Serious: Yes (Hospitalization)
  Sender: FDA-Public Use
  Company Number: US-AMGEN-US087187

PATIENT
  Age: 70 Year
  Sex: Male
  Weight: 95.3 kg

DRUGS (3)
  1. PROCRIT [Suspect]
     Indication: HEPATITIS C
     Route: 058
     Dates: start: 20040601
  2. INFERGEN [Concomitant]
     Dates: start: 20010101
  3. CARDURA [Concomitant]

REACTIONS (5)
  - ADRENAL INSUFFICIENCY [None]
  - DIZZINESS [None]
  - FALL [None]
  - HYPONATRAEMIA [None]
  - ORTHOSTATIC HYPOTENSION [None]
